FAERS Safety Report 5511030-0 (Version None)
Quarter: 2007Q4

REPORT INFORMATION
  Report Type: 
  Country: None (occurrence: None)
  Receive Date: 20071109
  Receipt Date: 20071029
  Transmission Date: 20080405
  Serious: Yes (Hospitalization)
  Sender: FDA-Public Use
  Company Number: US-JNJFOC-20071007973

PATIENT
  Sex: Female
  Weight: 127.46 kg

DRUGS (3)
  1. DURAGESIC-100 [Suspect]
     Indication: PAIN
     Route: 062
  2. SEROQUEL [Concomitant]
     Indication: HEAD INJURY
     Route: 048
  3. LITHIUM CARBONATE [Concomitant]
     Indication: HEAD INJURY
     Route: 048

REACTIONS (3)
  - BLADDER NEOPLASM SURGERY [None]
  - THERAPEUTIC RESPONSE UNEXPECTED [None]
  - WEIGHT DECREASED [None]
